FAERS Safety Report 7339686-0 (Version None)
Quarter: 2011Q1

REPORT INFORMATION
  Report Type: 
  Country: None (occurrence: None)
  Receive Date: 20110303
  Receipt Date: 20110303
  Transmission Date: 20110831
  Serious: Yes (Hospitalization, Disabling)
  Sender: FDA-Public Use
  Company Number: None

PATIENT
  Sex: Male
  Weight: 116.5744 kg

DRUGS (1)
  1. CELEBREX [Suspect]
     Indication: ARTHRALGIA
     Dosage: 200 M.G. STOP TAKING DEC. 2010
     Dates: end: 20101223

REACTIONS (4)
  - HEART RATE INCREASED [None]
  - HAEMATOSPERMIA [None]
  - CORONARY ARTERIAL STENT INSERTION [None]
  - GASTRIC DISORDER [None]
